FAERS Safety Report 7755877-9 (Version None)
Quarter: 2011Q3

REPORT INFORMATION
  Report Type: 
  Country: None (occurrence: None)
  Receive Date: 20110916
  Receipt Date: 20090726
  Transmission Date: 20111222
  Serious: Yes (Hospitalization, Other)
  Sender: FDA-Public Use
  Company Number: US-BAYER-200928006NA

PATIENT
  Age: 52 Year
  Sex: Female
  Weight: 99.773 kg

DRUGS (49)
  1. NEXIUM [Concomitant]
     Dosage: 40 MG, QD
  2. NITRO-DUR [Concomitant]
  3. ANCEF [Concomitant]
     Dosage: 1 G, UNK
     Route: 042
  4. LIDOCAINE [Concomitant]
     Dosage: 100 MG, UNK
     Route: 042
     Dates: start: 20050926, end: 20050926
  5. FLUOXETINE [Concomitant]
  6. LASIX [Concomitant]
     Dosage: 40 MG, QD
     Route: 048
     Dates: start: 20040101
  7. RISPERDAL [Concomitant]
     Dosage: 5 MG 1.5 TABS
     Route: 048
  8. ZETIA [Concomitant]
     Dosage: 10 MG, QD
     Route: 048
  9. INDAPAMIDE [Concomitant]
     Dosage: 2.5 MG, QD
     Route: 048
  10. PAXIL [Concomitant]
     Dosage: 20 MG, QD
     Route: 048
  11. CARDIOPLEGIA [Concomitant]
     Dosage: UNK
     Dates: start: 20050926, end: 20050926
  12. RED BLOOD CELLS [Concomitant]
     Dosage: 2 U, UNK
     Route: 042
     Dates: start: 20050926
  13. RED BLOOD CELLS [Concomitant]
     Dosage: 1 UNIT
     Route: 042
     Dates: start: 20051006
  14. RED BLOOD CELLS [Concomitant]
     Dosage: 1 UNIT
     Dates: start: 20051007
  15. ACETYLSALICYLIC ACID SRT [Concomitant]
     Dosage: 325 MG, QD
     Route: 048
  16. AVANDIA [Concomitant]
     Dosage: 4 MG, BID
     Route: 048
     Dates: start: 19950101
  17. PLAVIX [Concomitant]
     Dosage: 75 MG, QD
  18. TOPAMAX [Concomitant]
     Dosage: 200 MG, BID
     Route: 048
  19. MANNITOL [Concomitant]
     Dosage: 125 MG, UNK
     Route: 042
     Dates: start: 20050926, end: 20050926
  20. OPTIRAY 160 [Concomitant]
     Dosage: 125 CC
     Route: 042
     Dates: start: 20010503
  21. TRASYLOL [Suspect]
     Indication: CORONARY ARTERY BYPASS
     Dosage: 1 ML, TEST DOSE
     Route: 042
     Dates: start: 20050926, end: 20050926
  22. TRASYLOL [Suspect]
     Indication: CARDIAC ABLATION
     Dosage: 200 ML, LOADING DOSE
     Route: 042
     Dates: start: 20050926
  23. TRASYLOL [Suspect]
     Indication: ECHOCARDIOGRAM
     Dosage: 200 ML, PRIME
     Dates: start: 20050926, end: 20050926
  24. SEROQUEL [Concomitant]
     Dosage: 25 MG, QD
     Route: 048
  25. RED BLOOD CELLS [Concomitant]
     Dosage: 2 UNITS
     Route: 042
     Dates: start: 20051009
  26. MUCOMYST [Concomitant]
  27. TRASYLOL [Suspect]
     Indication: PHLEBECTOMY
     Dosage: 50 ML, Q1HR
     Dates: start: 20050926
  28. METHADONE HCL [Concomitant]
     Dosage: 5 MG, BID
     Route: 048
  29. GLYBURIDE [Concomitant]
     Dosage: 5 MG, BID
  30. PROZAC [Concomitant]
     Route: 048
  31. INSULIN [Concomitant]
     Dosage: 250/250
     Route: 041
     Dates: start: 20050926, end: 20050926
  32. DOPAMINE HCL [Concomitant]
     Dosage: 800/250
     Route: 042
  33. MIDAZOLAM HCL [Concomitant]
     Dosage: UNK
     Route: 042
     Dates: start: 20050926, end: 20050926
  34. OPTIRAY 160 [Concomitant]
     Dosage: 90 ML, UNK
     Route: 042
     Dates: start: 20050924
  35. OPTIRAY 160 [Concomitant]
     Dosage: UNK 100 + 50
     Route: 042
     Dates: start: 19990612
  36. RED BLOOD CELLS [Concomitant]
     Dosage: 1 UNIT
     Route: 042
     Dates: start: 20050927
  37. NEOSPORIN OPHTH [BACITRACIN ZINC,NEOMYCIN SULFATE,POLYMYXIN B SULF [Concomitant]
  38. LANTUS [Concomitant]
  39. HUMALOG [Concomitant]
  40. DIAZEPAM [Concomitant]
     Dosage: 10 MG 3 TIMES A DAY
  41. NITROGLYCERIN [Concomitant]
     Dosage: 50/250
     Route: 042
     Dates: start: 20050926, end: 20050926
  42. HEPARIN [Concomitant]
     Dosage: UNK
     Route: 042
     Dates: start: 20050926, end: 20050926
  43. PROTAMINE [Concomitant]
     Dosage: 400MG AFTER TEST DOSE
     Route: 042
     Dates: start: 20050926, end: 20050926
  44. NEURONTIN [Concomitant]
  45. ISOSORBIDE DINITRATE [Concomitant]
     Dosage: 40 MG, BID
     Route: 048
  46. EVISTA [Concomitant]
     Dosage: 1 TAB DAILY
  47. HYDROCHLOROTHIAZIDE [Concomitant]
     Dosage: UNK UNK, QD
  48. VANCOMYCIN [Concomitant]
     Dosage: 1 G, UNK
     Route: 042
     Dates: start: 20050926, end: 20050926
  49. RED BLOOD CELLS [Concomitant]
     Dosage: 2 UNITS
     Route: 042
     Dates: start: 20051005

REACTIONS (8)
  - RENAL FAILURE [None]
  - PAIN [None]
  - DEPRESSION [None]
  - UNEVALUABLE EVENT [None]
  - ANXIETY [None]
  - FEAR [None]
  - ANHEDONIA [None]
  - INJURY [None]
